FAERS Safety Report 7494936-5 (Version None)
Quarter: 2011Q2

REPORT INFORMATION
  Report Type: 
  Country: None (occurrence: None)
  Receive Date: 20110520
  Receipt Date: 20110512
  Transmission Date: 20111010
  Serious: Yes (Death)
  Sender: FDA-Public Use
  Company Number: GB-UCBSA-032656

PATIENT
  Sex: Female

DRUGS (1)
  1. CIMZIA [Suspect]
     Dosage: NO. OF DOSES RECEIVED :ONE
     Route: 058

REACTIONS (1)
  - MYOCARDIAL INFARCTION [None]
